FAERS Safety Report 15977079 (Version 1)
Quarter: 2019Q1

REPORT INFORMATION
  Report Type: Spontaneous
  Country: NL (occurrence: NL)
  Receive Date: 20190218
  Receipt Date: 20190218
  Transmission Date: 20190418
  Serious: Yes (Death, Hospitalization, Other)
  Sender: FDA-Public Use
  Company Number: NL-TEVA-2019-NL-1012647

PATIENT
  Age: 69 Year
  Sex: Male
  Weight: 73 kg

DRUGS (12)
  1. METFORMIN HCL [Suspect]
     Active Substance: METFORMIN HYDROCHLORIDE
     Dosage: 50 MILLIGRAM DAILY; 1 UNK, 2X/DAY
     Route: 048
     Dates: start: 200810
  2. TILDIEM [Concomitant]
     Active Substance: DILTIAZEM HYDROCHLORIDE
     Dosage: 60 UNK, 3X/DAY
  3. PREDNISON TABLET 5MG [Concomitant]
     Active Substance: PREDNISONE
     Dosage: 60MG
     Route: 048
     Dates: start: 200810
  4. ACENOCOUMAROL [Concomitant]
     Active Substance: ACENOCOUMAROL
  5. PLAVIX [Concomitant]
     Active Substance: CLOPIDOGREL BISULFATE
     Dosage: 1 UNK, 1X/DAY
  6. TRAMADOL. [Concomitant]
     Active Substance: TRAMADOL
  7. LYRICA [Suspect]
     Active Substance: PREGABALIN
     Indication: PAIN IN EXTREMITY
     Dosage: 300 MILLIGRAM DAILY; 300 MG, 1X/DAY
     Route: 048
     Dates: start: 2008
  8. MOVICOLON [Concomitant]
     Active Substance: POLYETHYLENE GLYCOL 3350\POTASSIUM CHLORIDE\SODIUM BICARBONATE\SODIUM CHLORIDE
     Dosage: DOSAGE NOT KNOWN
     Route: 048
  9. ASCAL [Concomitant]
     Dosage: 1 UNK, 1X/DAY
  10. OXYCONTIN [Concomitant]
     Active Substance: OXYCODONE HYDROCHLORIDE
  11. NON SPECIFIED INSULIN [Concomitant]
     Dosage: ACCORDING TO SCHEDULE
     Route: 058
     Dates: start: 200810
  12. PANTOZOL [Concomitant]
     Active Substance: PANTOPRAZOLE SODIUM
     Dosage: UNK
     Route: 048
     Dates: start: 200810

REACTIONS (3)
  - Alveolitis [Unknown]
  - Influenza virus test positive [Unknown]
  - Pulmonary fibrosis [Fatal]

NARRATIVE: CASE EVENT DATE: 20080930
